FAERS Safety Report 7728573-1 (Version None)
Quarter: 2011Q3

REPORT INFORMATION
  Report Type: 
  Country: None (occurrence: None)
  Receive Date: 20110831
  Receipt Date: 20110831
  Transmission Date: 20111222
  Serious: Yes (Other)
  Sender: FDA-Public Use
  Company Number: None

PATIENT
  Sex: Female
  Weight: 52.1637 kg

DRUGS (1)
  1. LATANOPROST [Suspect]
     Indication: GLAUCOMA
     Dosage: 1 DROP IN EACH EYE ONCE A DAY (ONLY ONCE)
     Route: 047
     Dates: start: 20110601

REACTIONS (4)
  - EAR DISCOMFORT [None]
  - PRODUCT SUBSTITUTION ISSUE [None]
  - FOREIGN BODY SENSATION IN EYES [None]
  - ABNORMAL SENSATION IN EYE [None]
